FAERS Safety Report 26169920 (Version 1)
Quarter: 2025Q4

REPORT INFORMATION
  Report Type: Report from Study
  Country: GB (occurrence: GB)
  Receive Date: 20251217
  Receipt Date: 20251217
  Transmission Date: 20260118
  Serious: Yes (Other)
  Sender: Vantive US Healthcare
  Company Number: GB-VANTIVE-2025VAN005781

PATIENT
  Sex: Female

DRUGS (2)
  1. CALCIUM CL\DEXTROSE\MAGNESIUM CL\SODIUM BICAR\SODIUM CL\SODIUM LACT [Suspect]
     Active Substance: CALCIUM CHLORIDE\DEXTROSE MONOHYDRATE\MAGNESIUM CHLORIDE\SODIUM BICARBONATE\SODIUM CHLORIDE\SODIUM L
     Indication: Chronic kidney disease
     Dosage: 1000 (DETAILS NOT REPORTED)
     Route: 033
     Dates: start: 20251215, end: 20251215
  2. UNSPECIFIED INGREDIENT [Suspect]
     Active Substance: UNSPECIFIED INGREDIENT
     Dosage: UNK
     Route: 065

REACTIONS (2)
  - Angina pectoris [Unknown]
  - Chest pain [Unknown]
